FAERS Safety Report 21601699 (Version 1)
Quarter: 2022Q4

REPORT INFORMATION
  Report Type: Spontaneous
  Country: US (occurrence: US)
  Receive Date: 20221116
  Receipt Date: 20221116
  Transmission Date: 20230113
  Serious: No
  Sender: FDA-Public Use
  Company Number: US-BRISTOL-MYERS SQUIBB COMPANY-2022-136100

PATIENT
  Age: 77 Year
  Sex: Male
  Weight: 85.73 kg

DRUGS (1)
  1. POMALYST [Suspect]
     Active Substance: POMALIDOMIDE
     Indication: Plasma cell myeloma
     Dosage: FREQUENCY- 3 WK ON/ 1 WK OFF.
     Route: 048
     Dates: start: 20221001

REACTIONS (1)
  - Renal disorder [Not Recovered/Not Resolved]
